FAERS Safety Report 6256104-4 (Version None)
Quarter: 2009Q3

REPORT INFORMATION
  Report Type: 
  Country: None (occurrence: None)
  Receive Date: 20090706
  Receipt Date: 20090626
  Transmission Date: 20100115
  Serious: Yes (Death, Hospitalization)
  Sender: FDA-Public Use
  Company Number: IN-ELI_LILLY_AND_COMPANY-IN200905002461

PATIENT
  Age: 47 Year
  Sex: Male
  Weight: 80 kg

DRUGS (1)
  1. XIGRIS [Suspect]
     Indication: POST PROCEDURAL SEPSIS
     Dosage: UNK, UNKNOWN
     Route: 042
     Dates: start: 20090501, end: 20090502

REACTIONS (2)
  - CONDITION AGGRAVATED [None]
  - SEPSIS [None]
